FAERS Safety Report 21887120 (Version 1)
Quarter: 2023Q1

REPORT INFORMATION
  Report Type: Report from Study
  Country: US (occurrence: US)
  Receive Date: 20230119
  Receipt Date: 20230119
  Transmission Date: 20230418
  Serious: No
  Sender: FDA-Public Use
  Company Number: US-ABBVIE-4244301

PATIENT
  Sex: Female

DRUGS (1)
  1. HUMIRA [Suspect]
     Active Substance: ADALIMUMAB
     Indication: Psoriatic arthropathy
     Dosage: CITRATE FREE?EVENTS SWELLING OF FACE, NAUSEA, COUGH AND DRY THROAT ONSET DATE: 2022
     Route: 058
     Dates: start: 20221128

REACTIONS (4)
  - Swelling face [Not Recovered/Not Resolved]
  - Dry throat [Unknown]
  - Cough [Unknown]
  - Nausea [Unknown]
